FAERS Safety Report 5718357-8 (Version None)
Quarter: 2008Q2

REPORT INFORMATION
  Report Type: 
  Country: None (occurrence: None)
  Receive Date: 20080425
  Receipt Date: 20070816
  Transmission Date: 20081010
  Serious: No
  Sender: FDA-Public Use
  Company Number: A0671181A

PATIENT
  Age: 63 Year
  Sex: Female

DRUGS (2)
  1. DEXEDRINE [Suspect]
     Indication: DEPRESSION
     Dosage: 5MG PER DAY
     Route: 048
     Dates: start: 20070701
  2. UNKNOWN MEDICATION [Concomitant]
     Indication: ANXIETY

REACTIONS (1)
  - IRRITABILITY [None]
